FAERS Safety Report 8687911 (Version 4)
Quarter: 2014Q3

REPORT INFORMATION
  Report Type: Report from Study
  Country: CA (occurrence: CA)
  Receive Date: 20120727
  Receipt Date: 20140716
  Transmission Date: 20150326
  Serious: Yes (Death, Life-Threatening, Hospitalization)
  Sender: FDA-Public Use
  Company Number: CA-TEVA-350581USA

PATIENT
  Age: 49 Year
  Sex: Male
  Weight: 106.9 kg

DRUGS (40)
  1. ATROVENT [Concomitant]
     Active Substance: IPRATROPIUM BROMIDE
     Dosage: 6-8 PUFFS
     Route: 055
     Dates: start: 20120717
  2. CALCIUM CHLORIDE. [Concomitant]
     Active Substance: CALCIUM CHLORIDE
     Route: 042
     Dates: start: 20120718, end: 20120718
  3. GRANULOCYTE COLONY STIMULATING FACTOR [Concomitant]
     Active Substance: GRANULOCYTE COLONY-STIMULATING FACTOR NOS
     Dosage: 480 MICROGRAM DAILY;
     Route: 058
     Dates: start: 20120716
  4. HYDROMORPHONE [Concomitant]
     Active Substance: HYDROMORPHONE
     Route: 048
     Dates: start: 20120716, end: 20120717
  5. VENTOLIN [Concomitant]
     Active Substance: ALBUTEROL SULFATE
     Dosage: 6-8 PUFFS
     Route: 055
     Dates: start: 20120717
  6. SEPTRA [Concomitant]
     Active Substance: SULFAMETHOXAZOLE\TRIMETHOPRIM
     Dosage: .8571 DOSAGE FORMS DAILY; EVERY MONDAY, WEDNESDAY, FRIDAY
     Route: 048
     Dates: start: 20120718
  7. VITAMIN K [Concomitant]
     Active Substance: PHYTONADIONE
     Route: 042
     Dates: start: 20120717, end: 20120717
  8. TAZOCIN [Concomitant]
     Active Substance: PIPERACILLIN SODIUM\TAZOBACTAM SODIUM
     Dosage: 13.5 GRAM DAILY;
     Route: 042
     Dates: start: 20120712
  9. FOLIC ACID. [Concomitant]
     Active Substance: FOLIC ACID
     Indication: VITAMIN SUPPLEMENTATION
     Dosage: 5 MILLIGRAM DAILY;
     Route: 048
     Dates: start: 20120706
  10. SEPTRA [Concomitant]
     Active Substance: SULFAMETHOXAZOLE\TRIMETHOPRIM
     Indication: INFECTION PROPHYLAXIS
     Dosage: .8571 DOSAGE FORMS DAILY; EVERY MONDAY, WEDNESDAY, FRIDAY
     Route: 048
     Dates: start: 20120704, end: 20120716
  11. SEPTRA [Concomitant]
     Active Substance: SULFAMETHOXAZOLE\TRIMETHOPRIM
     Dosage: 160 MILLIGRAM DAILY;
     Route: 042
     Dates: start: 20120717, end: 20120718
  12. RANITIDINE [Concomitant]
     Active Substance: RANITIDINE\RANITIDINE HYDROCHLORIDE
     Indication: DYSPEPSIA
     Dosage: 300 MILLIGRAM DAILY;
     Route: 048
     Dates: start: 20120704, end: 20120717
  13. MORPHINE [Concomitant]
     Active Substance: MORPHINE
     Dosage: 1 MG TO 5 MG
     Route: 042
     Dates: start: 20120717
  14. LASIX [Concomitant]
     Active Substance: FUROSEMIDE
     Route: 042
     Dates: start: 20120716, end: 20120716
  15. FENTANYL. [Concomitant]
     Active Substance: FENTANYL
     Dosage: 25-50 MG
     Route: 042
  16. HYDROCORTISONE. [Concomitant]
     Active Substance: HYDROCORTISONE
     Dosage: 800 MILLIGRAM DAILY;
     Route: 042
     Dates: end: 20120717
  17. RAMIPRIL. [Concomitant]
     Active Substance: RAMIPRIL
     Indication: HYPERTENSION
     Dosage: 5 MILLIGRAM DAILY;
     Route: 048
     Dates: start: 201112, end: 20120715
  18. CODEINE [Concomitant]
     Active Substance: CODEINE
     Indication: COUGH
     Dosage: 15-30 MG EVERY 4 HOURS AS NEEDED
     Route: 048
     Dates: end: 20120717
  19. INSULIN [Concomitant]
     Active Substance: INSULIN NOS
     Dates: end: 20120717
  20. ACYCLOVIR. [Concomitant]
     Active Substance: ACYCLOVIR
     Indication: ANTIVIRAL PROPHYLAXIS
     Dosage: 800 MILLIGRAM DAILY;
     Dates: start: 201011
  21. CLAVULIN [Concomitant]
     Active Substance: AMOXICILLIN\CLAVULANIC ACID
     Indication: INFECTION PROPHYLAXIS
     Dosage: 1500 MILLIGRAM DAILY;
     Route: 048
  22. BENADRYL [Concomitant]
     Active Substance: DIPHENHYDRAMINE HYDROCHLORIDE
     Route: 042
  23. PROPOFOL. [Concomitant]
     Active Substance: PROPOFOL
     Route: 042
  24. VANCOMYCIN [Concomitant]
     Active Substance: VANCOMYCIN
     Dosage: 4500 MILLIGRAM DAILY;
  25. COMBIVENT [Concomitant]
     Active Substance: ALBUTEROL SULFATE\IPRATROPIUM BROMIDE
     Indication: COUGH
     Dosage: 10 ML DAILY;
     Route: 048
     Dates: start: 20120704
  26. VITAMIN B12 [Concomitant]
     Active Substance: CYANOCOBALAMIN
     Indication: VITAMIN SUPPLEMENTATION
     Dosage: 1200 MILLIGRAM DAILY;
     Route: 048
     Dates: start: 20120706
  27. SEPTRA [Concomitant]
     Active Substance: SULFAMETHOXAZOLE\TRIMETHOPRIM
     Dosage: 100 ML DAILY;
     Route: 042
     Dates: start: 20120716, end: 20120717
  28. METFORMIN [Concomitant]
     Active Substance: METFORMIN HYDROCHLORIDE
     Indication: TYPE 2 DIABETES MELLITUS
     Dosage: 500 MILLIGRAM DAILY;
     Route: 048
     Dates: start: 2006, end: 20120717
  29. POTASSIUM [Concomitant]
     Active Substance: POTASSIUM
  30. HYDROMORPHONE [Concomitant]
     Active Substance: HYDROMORPHONE
     Dates: start: 20120716, end: 20120717
  31. VASOPRESSIN [Concomitant]
     Active Substance: VASOPRESSIN
  32. VORICONAZOLE. [Concomitant]
     Active Substance: VORICONAZOLE
     Indication: ANTIVIRAL PROPHYLAXIS
     Dosage: 800 MILLIGRAM DAILY;
     Route: 048
  33. MORPHINE [Concomitant]
     Active Substance: MORPHINE
     Dates: start: 20120712, end: 20120717
  34. SLOW-K [Concomitant]
     Active Substance: POTASSIUM CHLORIDE
     Dosage: EVERY 4 HOURS
     Route: 048
     Dates: start: 20120712, end: 20120717
  35. MIDAZOLAM [Concomitant]
     Active Substance: MIDAZOLAM\MIDAZOLAM HYDROCHLORIDE
     Dosage: 1-5 MG
     Route: 042
     Dates: start: 20120717
  36. NOREPINEPHRINE [Concomitant]
     Active Substance: NOREPINEPHRINE\NOREPINEPHRINE BITARTRATE
     Route: 042
     Dates: start: 20120717
  37. TREANDA [Suspect]
     Active Substance: BENDAMUSTINE HYDROCHLORIDE
     Indication: NON-HODGKIN^S LYMPHOMA UNSPECIFIED HISTOLOGY INDOLENT
     Dosage: CYCLE 1
     Route: 042
     Dates: start: 20120706
  38. ALLOPURINOL. [Concomitant]
     Active Substance: ALLOPURINOL
     Indication: PROPHYLAXIS
     Dosage: 300 MILLIGRAM DAILY;
     Route: 048
     Dates: start: 20120706
  39. BUDESONIDE. [Concomitant]
     Active Substance: BUDESONIDE
     Indication: COUGH
     Dosage: 2 MILLIGRAM DAILY;
     Route: 048
     Dates: start: 20120703, end: 20120717
  40. LEVOFLOXACIN [Concomitant]
     Active Substance: LEVOFLOXACIN

REACTIONS (1)
  - Multi-organ failure [Fatal]

NARRATIVE: CASE EVENT DATE: 20120719
